FAERS Safety Report 17564020 (Version 1)
Quarter: 2020Q1

REPORT INFORMATION
  Report Type: Report from Study
  Country: CO (occurrence: CO)
  Receive Date: 20200320
  Receipt Date: 20200320
  Transmission Date: 20200409
  Serious: Yes (Hospitalization)
  Sender: FDA-Public Use
  Company Number: CO-ROCHE-2523514

PATIENT
  Sex: Female

DRUGS (1)
  1. HERCEPTIN [Suspect]
     Active Substance: TRASTUZUMAB
     Indication: PRODUCT USED FOR UNKNOWN INDICATION
     Dosage: EVERY 8 DAYS
     Route: 065

REACTIONS (7)
  - Diarrhoea [Unknown]
  - Malaise [Unknown]
  - Ocular hyperaemia [Unknown]
  - Vomiting [Unknown]
  - Rash [Unknown]
  - Erythema [Unknown]
  - Swelling [Unknown]
